FAERS Safety Report 8979296 (Version 5)
Quarter: 2013Q3

REPORT INFORMATION
  Report Type: Spontaneous
  Country: US (occurrence: US)
  Receive Date: 20121221
  Receipt Date: 20130808
  Transmission Date: 20140515
  Serious: Yes (Hospitalization, Other)
  Sender: FDA-Public Use
  Company Number: US-PFIZER INC-2012321107

PATIENT
  Age: 75 Year
  Sex: Female
  Weight: 74.83 kg

DRUGS (4)
  1. ROBITUSSIN [Suspect]
     Indication: COUGH
     Dosage: UNK
  2. PENICILLIN G BENZATHINE [Suspect]
     Indication: NASOPHARYNGITIS
     Dosage: UNK
  3. NYQUIL [Suspect]
     Indication: COUGH
     Dosage: UNK
  4. NEXIUM [Concomitant]
     Indication: GASTRIC DISORDER
     Dosage: 40 MG, DAILY

REACTIONS (3)
  - Fall [Unknown]
  - Apparent death [Unknown]
  - Angiopathy [Unknown]
